FAERS Safety Report 8550976-6 (Version None)
Quarter: 2012Q3

REPORT INFORMATION
  Report Type: 
  Country: None (occurrence: None)
  Receive Date: 20120730
  Receipt Date: 20120726
  Transmission Date: 20120928
  Serious: No
  Sender: FDA-Public Use
  Company Number: US-PFIZER INC-2012171545

PATIENT
  Sex: Female
  Weight: 61.224 kg

DRUGS (4)
  1. THEOPHYLLINE [Concomitant]
     Dosage: 100 MG
  2. PREDNISONE [Concomitant]
     Dosage: UNK
  3. VFEND [Suspect]
  4. VFEND [Suspect]
     Indication: DYSPNOEA
     Dosage: 200 MG, 1X/DAY
     Route: 048

REACTIONS (1)
  - NO ADVERSE EVENT [None]
